FAERS Safety Report 11676352 (Version 3)
Quarter: 2016Q1

REPORT INFORMATION
  Report Type: Spontaneous
  Country: US (occurrence: US)
  Receive Date: 20151028
  Receipt Date: 20160112
  Transmission Date: 20160525
  Serious: No
  Sender: FDA-Public Use
  Company Number: US-TEVA-603652USA

PATIENT
  Age: 53 Year
  Sex: Female

DRUGS (1)
  1. ZECUITY [Suspect]
     Active Substance: SUMATRIPTAN SUCCINATE
     Dosage: 6.5 MG/4 HOURS
     Route: 062
     Dates: start: 20151021

REACTIONS (6)
  - Application site vesicles [Unknown]
  - Application site paraesthesia [Unknown]
  - Drug ineffective [Unknown]
  - Device adhesion issue [Unknown]
  - Device leakage [Unknown]
  - Device malfunction [Unknown]

NARRATIVE: CASE EVENT DATE: 20151021
